FAERS Safety Report 10658919 (Version 1)
Quarter: 2014Q4

REPORT INFORMATION
  Report Type: Spontaneous
  Country: US (occurrence: US)
  Receive Date: 20141217
  Receipt Date: 20141217
  Transmission Date: 20150529
  Serious: Yes (Other)
  Sender: FDA-Public Use
  Company Number: US-CELGENEUS-163-20785-14023748

PATIENT
  Sex: Female

DRUGS (1)
  1. THALOMID [Suspect]
     Active Substance: THALIDOMIDE
     Indication: PLASMA CELL MYELOMA
     Dosage: UNKNOWN
     Route: 048
     Dates: start: 2002

REACTIONS (5)
  - Sleep disorder [Unknown]
  - Fall [Unknown]
  - Coordination abnormal [Unknown]
  - Gastrointestinal motility disorder [Unknown]
  - Neuropathy peripheral [Unknown]
